FAERS Safety Report 10052349 (Version 1)
Quarter: 2014Q2

REPORT INFORMATION
  Report Type: Spontaneous
  Country: CA (occurrence: None)
  Receive Date: 20140401
  Receipt Date: 20140401
  Transmission Date: 20141212
  Serious: Yes (Other)
  Sender: FDA-Public Use
  Company Number: None

PATIENT
  Age: 28 Year
  Sex: Male
  Weight: 79.38 kg

DRUGS (2)
  1. HAIRFIN (FINASTRIDE) 1 MG HAIRFIN 1MG [Suspect]
     Indication: ALOPECIA
     Route: 048
     Dates: start: 20130220, end: 20131031
  2. MINOXIN PLUS [Suspect]
     Dosage: SPRAY ?TWICE DAILY?SPRAY ON HAIR

REACTIONS (6)
  - Dizziness [None]
  - Palpitations [None]
  - Heart rate increased [None]
  - Disturbance in attention [None]
  - Depression [None]
  - Sleep disorder [None]
